FAERS Safety Report 9258085 (Version 1)
Quarter: 2013Q2

REPORT INFORMATION
  Report Type: Spontaneous
  Country: US (occurrence: None)
  Receive Date: 20130424
  Receipt Date: 20130424
  Transmission Date: 20140414
  Serious: Yes (Other)
  Sender: FDA-Public Use
  Company Number: None

PATIENT
  Age: 63 Year
  Sex: Female
  Weight: 56.8 kg

DRUGS (7)
  1. ANASTROZOLE [Suspect]
     Indication: BREAST CANCER
     Dosage: 1 A DAY
     Route: 048
     Dates: start: 20120321
  2. VIT C [Concomitant]
  3. VIT D [Concomitant]
  4. CALCIUM [Concomitant]
  5. COENZYME Q10 [Concomitant]
  6. VIT E [Concomitant]
  7. SELENIUM PROLIA [Concomitant]

REACTIONS (1)
  - Hypertension [None]
